FAERS Safety Report 9123523 (Version 2)
Quarter: 2013Q1

REPORT INFORMATION
  Report Type: Spontaneous
  Country: GB (occurrence: None)
  Receive Date: 20130129
  Receipt Date: 20130130
  Transmission Date: 20140127
  Serious: Yes (Disabling, Other)
  Sender: FDA-Public Use
  Company Number: AUR-APL-2013-00807

PATIENT
  Age: 49 Year
  Sex: Male
  Weight: 96 kg

DRUGS (4)
  1. FINASTERIDE (FINASTERIDE) [Suspect]
     Indication: URINARY HESITATION
     Dosage: 5 MG (5 MG, 1 IN 1 D), ORAL
     Route: 048
     Dates: start: 20041201, end: 20080616
  2. FINASTERIDE (FINASTERIDE) [Suspect]
     Indication: NOCTURIA
     Dosage: 5 MG (5 MG, 1 IN 1 D), ORAL
     Route: 048
     Dates: start: 20041201, end: 20080616
  3. TAMSULOSIN [Suspect]
     Indication: NOCTURIA
     Dosage: 400 MCG (400 MCG, 1 IN 1 D), ORAL
     Route: 048
     Dates: start: 20041201, end: 20080616
  4. TAMSULOSIN [Suspect]
     Indication: URINARY HESITATION
     Dosage: 400 MCG (400 MCG, 1 IN 1 D), ORAL
     Route: 048
     Dates: start: 20041201, end: 20080616

REACTIONS (4)
  - Haematospermia [None]
  - Prostate cancer [None]
  - Erectile dysfunction [None]
  - Sexual dysfunction [None]
